FAERS Safety Report 11163614 (Version 1)
Quarter: 2015Q2

REPORT INFORMATION
  Report Type: Spontaneous
  Country: US (occurrence: US)
  Receive Date: 20150604
  Receipt Date: 20150604
  Transmission Date: 20150821
  Serious: No
  Sender: FDA-Public Use
  Company Number: US-009507513-1505USA009723

PATIENT
  Sex: Female
  Weight: 138.55 kg

DRUGS (1)
  1. NEXPLANON [Suspect]
     Active Substance: ETONOGESTREL
     Indication: CONTRACEPTION
     Dosage: UNK
     Route: 059
     Dates: start: 20150407

REACTIONS (4)
  - Device dislocation [Not Recovered/Not Resolved]
  - Implant site erythema [Unknown]
  - Implant site pain [Unknown]
  - Implant site reaction [Unknown]

NARRATIVE: CASE EVENT DATE: 2015
